FAERS Safety Report 7655146-1 (Version None)
Quarter: 2011Q3

REPORT INFORMATION
  Report Type: 
  Country: None (occurrence: None)
  Receive Date: 20110804
  Receipt Date: 20110802
  Transmission Date: 20111222
  Serious: Yes (Other)
  Sender: FDA-Public Use
  Company Number: US-PFIZER INC-2011176283

PATIENT
  Sex: Male
  Weight: 81.633 kg

DRUGS (4)
  1. VIAGRA [Suspect]
     Dosage: UNK
     Dates: start: 20110101
  2. SINGULAIR [Concomitant]
     Indication: ASTHMA
     Dosage: UNK
  3. CLARITIN [Concomitant]
     Indication: HYPERSENSITIVITY
     Dosage: DAILY
  4. TYLENOL-500 [Concomitant]
     Indication: HEADACHE
     Dosage: 20 MG, AS NEEDED

REACTIONS (1)
  - ERECTION INCREASED [None]
